FAERS Safety Report 6402751-6 (Version None)
Quarter: 2009Q4

REPORT INFORMATION
  Report Type: 
  Country: None (occurrence: None)
  Receive Date: 20091013
  Receipt Date: 20091005
  Transmission Date: 20100525
  Serious: Yes (Death, Congenital Anomaly)
  Sender: FDA-Public Use
  Company Number: 2009US003670

PATIENT
  Sex: Female
  Weight: 2 kg

DRUGS (9)
  1. PROGRAF [Suspect]
     Indication: DRUG EXPOSURE DURING PREGNANCY
     Dosage: 3 MG, BID, ORAL; 2 MG, BID, ORAL; 3 MG, BID, ORAL
     Route: 048
  2. MYFORTIC [Concomitant]
  3. PREDNISONE TAB [Concomitant]
  4. DAPSONE [Concomitant]
  5. CELEXA [Concomitant]
  6. LEVOTHYROXINE SODIUM [Concomitant]
  7. VALCYTE [Concomitant]
  8. METOPROLOL (METOPROLOL) [Concomitant]
  9. ORAL CONTRACEPTIVE NOS (ORAL CONTRACEPTIVE NOS) [Concomitant]

REACTIONS (6)
  - DIAPHRAGMATIC HERNIA [None]
  - HAEMORRHAGE [None]
  - MATERNAL DRUGS AFFECTING FOETUS [None]
  - MEDIASTINAL SHIFT [None]
  - MEDICAL DEVICE COMPLICATION [None]
  - PULMONARY HYPOPLASIA [None]
